FAERS Safety Report 4730423-2 (Version None)
Quarter: 2005Q3

REPORT INFORMATION
  Report Type: 
  Country: None (occurrence: None)
  Receive Date: 20050801
  Receipt Date: 20050722
  Transmission Date: 20060218
  Serious: Yes (Hospitalization)
  Sender: FDA-Public Use
  Company Number: US-AMGEN-US140527

PATIENT
  Sex: Female

DRUGS (7)
  1. ARANESP [Suspect]
     Indication: ANAEMIA
     Dates: start: 20050621
  2. PROTONIX [Concomitant]
  3. PREDNISONE [Concomitant]
  4. NORETHINDRONE [Concomitant]
  5. IRON [Concomitant]
  6. VITAMINS [Concomitant]
  7. COENZYME Q10 [Concomitant]

REACTIONS (7)
  - BLOOD PRESSURE SYSTOLIC INCREASED [None]
  - CONDITION AGGRAVATED [None]
  - DECREASED APPETITE [None]
  - DRUG INEFFECTIVE [None]
  - HAEMOGLOBIN ABNORMAL [None]
  - MIGRAINE [None]
  - MITOCHONDRIAL MYOPATHY [None]
